FAERS Safety Report 4331412-2 (Version None)
Quarter: 2004Q2

REPORT INFORMATION
  Report Type: 
  Country: None (occurrence: None)
  Receive Date: 20040402
  Receipt Date: 20040402
  Transmission Date: 20050107
  Serious: Yes (Life-Threatening)
  Sender: FDA-Public Use
  Company Number: None

PATIENT
  Sex: Female
  Weight: 55.3388 kg

DRUGS (17)
  1. ZYVOX [Suspect]
     Indication: ABSCESS
     Dosage: 600 MG TWICE A DAY ORAL
     Route: 048
     Dates: start: 20031203, end: 20040127
  2. ZYVOX [Suspect]
     Indication: STAPHYLOCOCCAL INFECTION
     Dosage: 600 MG TWICE A DAY ORAL
     Route: 048
     Dates: start: 20031203, end: 20040127
  3. MULTI-VITAMIN [Concomitant]
  4. VITAMIN E 1 [Concomitant]
  5. SYNTHROID [Concomitant]
  6. ULTRACET [Concomitant]
  7. ZOLOFT [Concomitant]
  8. RISPERDAL [Concomitant]
  9. ACCUPRIL [Concomitant]
  10. AKWA [Concomitant]
  11. VITAMIN C [Concomitant]
  12. ZINC SULFATE [Concomitant]
  13. BACTROBAN [Concomitant]
  14. TYLENOL (CAPLET) [Concomitant]
  15. HYDROCODONE BITARTRATE AND ACETAMINOPHEN [Concomitant]
  16. ZYVOX [Concomitant]
  17. SOLU-MEDROL [Concomitant]

REACTIONS (5)
  - CONTUSION [None]
  - ECCHYMOSIS [None]
  - FALL [None]
  - HAEMOGLOBIN DECREASED [None]
  - PLATELET COUNT DECREASED [None]
